FAERS Safety Report 13518478 (Version 2)
Quarter: 2017Q3

REPORT INFORMATION
  Report Type: Spontaneous
  Country: US (occurrence: US)
  Receive Date: 20170505
  Receipt Date: 20170917
  Transmission Date: 20171127
  Serious: No
  Sender: FDA-Public Use
  Company Number: US-009507513-1705USA000333

PATIENT
  Age: 39 Year
  Sex: Female
  Weight: 109.75 kg

DRUGS (2)
  1. NEXPLANON [Suspect]
     Active Substance: ETONOGESTREL
     Dosage: NEW ROD
     Route: 059
     Dates: start: 2017
  2. NEXPLANON [Suspect]
     Active Substance: ETONOGESTREL
     Dosage: DOSE FREQUENCY: 68 MG / ONE ROD PER 3 YEARS
     Route: 059
     Dates: start: 20150416, end: 20170627

REACTIONS (5)
  - Device breakage [Recovered/Resolved]
  - Complication associated with device [Recovered/Resolved]
  - No adverse event [Unknown]
  - Complication of device removal [Recovered/Resolved]
  - Migration of implanted drug [Recovered/Resolved]

NARRATIVE: CASE EVENT DATE: 20170627
